FAERS Safety Report 9143789 (Version 1)
Quarter: 2013Q1

REPORT INFORMATION
  Report Type: Report from Study
  Country: US (occurrence: US)
  Receive Date: 20130306
  Receipt Date: 20130306
  Transmission Date: 20140127
  Serious: Yes (Death)
  Sender: FDA-Public Use
  Company Number: US-ROCHE-1086728

PATIENT
  Age: 57 Year
  Sex: Female
  Weight: 89.89 kg

DRUGS (2)
  1. CAPECITABINE [Suspect]
     Indication: BREAST CANCER METASTATIC
     Route: 048
     Dates: start: 20120707
  2. ONDANSETRON [Concomitant]
     Indication: NAUSEA
     Route: 048
     Dates: start: 20120709

REACTIONS (3)
  - Nausea [Recovered/Resolved]
  - Erythema [Not Recovered/Not Resolved]
  - Death [Fatal]
